FAERS Safety Report 21960012 (Version 4)
Quarter: 2024Q1

REPORT INFORMATION
  Report Type: Report from Study
  Country: BR (occurrence: BR)
  Receive Date: 20230206
  Receipt Date: 20240116
  Transmission Date: 20240410
  Serious: Yes (Other)
  Sender: FDA-Public Use
  Company Number: BR-CELLTRION INC.-2023BR002470

PATIENT

DRUGS (8)
  1. INFLIXIMAB [Suspect]
     Active Substance: INFLIXIMAB
     Indication: Ankylosing spondylitis
     Dosage: 5AMPOULES EVERY 1 MONTH (DATE START: MORE THAN YEAR AGO)
     Route: 042
  2. INFLIXIMAB [Suspect]
     Active Substance: INFLIXIMAB
     Dosage: 5 AMPOULES EVERY 2 MONTHS (DATE START: MORE THAN YEAR AGO)
     Route: 042
     Dates: start: 20220726
  3. DULOXETINE HYDROCHLORIDE [Concomitant]
     Active Substance: DULOXETINE HYDROCHLORIDE
     Indication: Fibromyalgia
     Dosage: 2 CAPSULES PER DAY
     Route: 048
     Dates: start: 2018
  4. PREGABALIN [Concomitant]
     Active Substance: PREGABALIN
     Indication: Fibromyalgia
     Dosage: 1 CAPSULE PER DAY
     Route: 048
     Dates: start: 2018
  5. TRAMADOL [Concomitant]
     Active Substance: TRAMADOL\TRAMADOL HYDROCHLORIDE
     Indication: Pain
     Dosage: EVERY 1 DAY
     Route: 048
     Dates: start: 2018
  6. TYLEX [CODEINE PHOSPHATE;PARACETAMOL] [Concomitant]
     Dosage: EVERY 1 DAY
     Route: 048
     Dates: start: 2018
  7. CYCLOBENZAPRINE [Concomitant]
     Active Substance: CYCLOBENZAPRINE
     Indication: Insomnia
  8. RIVOTRIL [Concomitant]
     Active Substance: CLONAZEPAM
     Dosage: 20 DROPS 3 TIMES A DAY

REACTIONS (14)
  - Diplegia [Unknown]
  - Diplegia [Unknown]
  - Ankylosing spondylitis [Unknown]
  - Diabetes mellitus [Not Recovered/Not Resolved]
  - Tremor [Unknown]
  - Osteoarthritis [Unknown]
  - Bone pain [Unknown]
  - Unevaluable event [Unknown]
  - Pain [Unknown]
  - Gait disturbance [Unknown]
  - Gait disturbance [Unknown]
  - Arthralgia [Unknown]
  - Therapy interrupted [Unknown]
  - Product supply issue [Unknown]

NARRATIVE: CASE EVENT DATE: 20240107
